FAERS Safety Report 8466493-8 (Version None)
Quarter: 2012Q2

REPORT INFORMATION
  Report Type: 
  Country: None (occurrence: None)
  Receive Date: 20120626
  Receipt Date: 20120613
  Transmission Date: 20120825
  Serious: Yes (Hospitalization)
  Sender: FDA-Public Use
  Company Number: US-ACTELION-A-NJ2012-66888

PATIENT

DRUGS (9)
  1. COREG [Concomitant]
  2. TRACLEER [Suspect]
     Indication: PULMONARY ARTERIAL HYPERTENSION
     Dosage: UNK
     Route: 048
     Dates: start: 20090101
  3. LANOXIN [Concomitant]
  4. ASPIRIN [Concomitant]
  5. LISINOPRIL [Concomitant]
  6. COUMADIN [Concomitant]
  7. REMODULIN [Concomitant]
  8. SILDENAFIL [Concomitant]
  9. LASIX [Concomitant]

REACTIONS (3)
  - BLOOD CULTURE POSITIVE [None]
  - IMPLANTABLE DEFIBRILLATOR INSERTION [None]
  - PLEURAL EFFUSION [None]
